FAERS Safety Report 20643015 (Version 2)
Quarter: 2022Q2

REPORT INFORMATION
  Report Type: Spontaneous
  Country: DE (occurrence: DE)
  Receive Date: 20220328
  Receipt Date: 20220621
  Transmission Date: 20220721
  Serious: Yes (Other)
  Sender: FDA-Public Use
  Company Number: None

PATIENT
  Age: 31 Year
  Sex: Female

DRUGS (5)
  1. PROGESTERONE [Suspect]
     Active Substance: PROGESTERONE
     Indication: Assisted reproductive technology
     Dosage: 600 MILLIGRAM DAILY; STRENGTH : 600 MG, 600 MG,1 IN 1 D
     Route: 065
  2. FOLLITROPIN BETA [Suspect]
     Active Substance: FOLLITROPIN BETA
     Indication: Assisted reproductive technology
     Dosage: 200 IU (INTERNATIONAL UNIT) DAILY; DAY 1-12 (200 IU,1 IN 1 D)
     Route: 065
     Dates: start: 20220211
  3. GONADORELIN [Suspect]
     Active Substance: GONADORELIN
     Indication: Assisted reproductive technology
     Dosage: .1 MILLIGRAM DAILY; DAY 1-12 (0.1 MG,1 IN 1 D)
     Route: 065
     Dates: start: 20220211
  4. GONADOTROPHIN, CHORIONIC [Suspect]
     Active Substance: GONADOTROPHIN, CHORIONIC
     Indication: Ovulation induction
     Dosage: 10000 IU (INTERNATIONAL UNIT) DAILY; 10000IU FOR ONE DAY
     Route: 065
     Dates: start: 20220222, end: 20220222
  5. GONADOTROPHIN, CHORIONIC [Suspect]
     Active Substance: GONADOTROPHIN, CHORIONIC
     Indication: Assisted reproductive technology
     Dosage: 5000 IU (INTERNATIONAL UNIT) DAILY; 5000IU FOR ONE DAY
     Route: 065
     Dates: start: 20220227, end: 20220227

REACTIONS (1)
  - Ovarian hyperstimulation syndrome [Recovered/Resolved]

NARRATIVE: CASE EVENT DATE: 20220302
